FAERS Safety Report 7100944-6 (Version None)
Quarter: 2010Q4

REPORT INFORMATION
  Report Type: 
  Country: None (occurrence: None)
  Receive Date: 20101113
  Receipt Date: 20100414
  Transmission Date: 20110411
  Serious: No
  Sender: FDA-Public Use
  Company Number: US-ALLERGAN-1003305US

PATIENT
  Age: 56 Year
  Sex: Female
  Weight: 54.422 kg

DRUGS (4)
  1. BOTOX COSMETIC [Suspect]
     Indication: SKIN WRINKLING
     Dosage: 39 UNITS, SINGLE
     Route: 030
     Dates: start: 20100311, end: 20100311
  2. BETACAINE/TETRACAINE/LIDOCAINE [Suspect]
     Dosage: UNK
     Route: 061
     Dates: start: 20100311, end: 20100311
  3. RHINOCORT [Concomitant]
     Indication: SEASONAL ALLERGY
  4. HORMONE REPLACEMENT [Concomitant]

REACTIONS (2)
  - HYPOAESTHESIA FACIAL [None]
  - WRONG TECHNIQUE IN DRUG USAGE PROCESS [None]
